FAERS Safety Report 10073064 (Version 1)
Quarter: 2014Q2

REPORT INFORMATION
  Report Type: Spontaneous
  Country: US (occurrence: US)
  Receive Date: 20140411
  Receipt Date: 20140411
  Transmission Date: 20141212
  Serious: Yes (Hospitalization, Other)
  Sender: FDA-Public Use
  Company Number: US-ACTAVIS-2014-06656

PATIENT
  Age: 17 Year
  Sex: Male

DRUGS (5)
  1. PREDNISONE (WATSON LABORATORIES) [Suspect]
     Indication: COLITIS ULCERATIVE
     Dosage: UNK
     Route: 065
  2. METHYLPREDNISOLONE ACETATE (WATSON LABORATORIES) [Suspect]
     Indication: COLITIS ULCERATIVE
     Dosage: UNK
     Route: 042
  3. INFLIXIMAB [Suspect]
     Indication: COLITIS ULCERATIVE
     Dosage: UNK
     Route: 065
  4. CULTURELLE [Suspect]
     Indication: COLITIS ULCERATIVE
     Dosage: 10*10^9 CELLS/CAPSULE
     Route: 048
  5. MESALAMINE [Concomitant]
     Indication: COLITIS ULCERATIVE
     Dosage: UNK
     Route: 065

REACTIONS (2)
  - Lactobacillus infection [Unknown]
  - Adenovirus infection [Unknown]
